FAERS Safety Report 7086313-6 (Version None)
Quarter: 2010Q4

REPORT INFORMATION
  Report Type: 
  Country: None (occurrence: None)
  Receive Date: 20101105
  Receipt Date: 20101025
  Transmission Date: 20110411
  Serious: Yes (Life-Threatening, Other)
  Sender: FDA-Public Use
  Company Number: US-ELI_LILLY_AND_COMPANY-US201010005948

PATIENT
  Sex: Male

DRUGS (2)
  1. CYMBALTA [Suspect]
  2. COPAXONE [Concomitant]
     Indication: MULTIPLE SCLEROSIS
     Dosage: 20 MG, UNK
     Route: 058
     Dates: start: 20061010, end: 20100101

REACTIONS (5)
  - ADVERSE EVENT [None]
  - DEAFNESS [None]
  - MALAISE [None]
  - MULTI-ORGAN FAILURE [None]
  - SUICIDAL IDEATION [None]
